FAERS Safety Report 16358882 (Version 2)
Quarter: 2019Q3

REPORT INFORMATION
  Report Type: Spontaneous
  Country: US (occurrence: US)
  Receive Date: 20190527
  Receipt Date: 20190723
  Transmission Date: 20191004
  Serious: No
  Sender: FDA-Public Use
  Company Number: US-ALEMBIC PHARMACUETICALS LIMITED-2019SCAL000302

PATIENT

DRUGS (2)
  1. DESVENLAFAXINE SUCCINATE. [Suspect]
     Active Substance: DESVENLAFAXINE SUCCINATE
     Indication: DEPRESSION
     Dosage: 20 MILLIGRAM, OD
     Dates: start: 201904
  2. DESVENLAFAXINE SUCCINATE. [Suspect]
     Active Substance: DESVENLAFAXINE SUCCINATE
     Indication: ANXIETY

REACTIONS (8)
  - Depression [Unknown]
  - Product substitution issue [Unknown]
  - Drug ineffective [Unknown]
  - Affective disorder [Unknown]
  - Impatience [Unknown]
  - Anxiety [Unknown]
  - Off label use [Unknown]
  - Insomnia [Unknown]
